FAERS Safety Report 16845253 (Version 2)
Quarter: 2019Q3

REPORT INFORMATION
  Report Type: Spontaneous
  Country: FI (occurrence: FI)
  Receive Date: 20190924
  Receipt Date: 20190930
  Transmission Date: 20191005
  Serious: Yes (Death, Other)
  Sender: FDA-Public Use
  Company Number: FI-MYLANLABS-2019M1088817

PATIENT
  Age: 45 Year
  Sex: Male

DRUGS (9)
  1. IRINOTECAN [Suspect]
     Active Substance: IRINOTECAN
     Indication: NEOPLASM MALIGNANT
     Dosage: 100 MILLIGRAM/SQ. METER, DAY 1 AND 8
     Route: 042
  2. CAPECITABINE. [Suspect]
     Active Substance: CAPECITABINE
     Indication: NEOPLASM MALIGNANT
     Dosage: 1000 MILLIGRAM/SQ. METER, DAY 1-14
     Route: 048
  3. CRIZOTINIB [Suspect]
     Active Substance: CRIZOTINIB
     Indication: LUNG NEOPLASM MALIGNANT
  4. EPIRUBICIN [Suspect]
     Active Substance: EPIRUBICIN
     Indication: NEOPLASM MALIGNANT
     Dosage: UNK
     Route: 065
  5. EPIRUBICIN [Suspect]
     Active Substance: EPIRUBICIN
     Indication: LUNG NEOPLASM MALIGNANT
  6. IRINOTECAN [Suspect]
     Active Substance: IRINOTECAN
     Indication: LUNG NEOPLASM MALIGNANT
  7. CAPECITABINE. [Suspect]
     Active Substance: CAPECITABINE
     Indication: LUNG NEOPLASM MALIGNANT
  8. CRIZOTINIB [Suspect]
     Active Substance: CRIZOTINIB
     Indication: NEOPLASM MALIGNANT
     Dosage: UNK
     Route: 065
  9. OXALIPLATIN. [Suspect]
     Active Substance: OXALIPLATIN
     Indication: LUNG NEOPLASM MALIGNANT
     Dosage: 130 MILLIGRAM/SQ. METER
     Route: 042

REACTIONS (4)
  - Condition aggravated [Fatal]
  - Neuropathy peripheral [Unknown]
  - Metastases to lymph nodes [Fatal]
  - Product use in unapproved indication [Unknown]
